FAERS Safety Report 9096048 (Version 1)
Quarter: 2013Q1

REPORT INFORMATION
  Report Type: Spontaneous
  Country: CN (occurrence: CN)
  Receive Date: 20130207
  Receipt Date: 20130207
  Transmission Date: 20140127
  Serious: Yes (Death, Hospitalization)
  Sender: FDA-Public Use
  Company Number: CN-JNJFOC-20130114663

PATIENT
  Age: 63 Year
  Sex: Female

DRUGS (3)
  1. IMODIUM [Suspect]
     Indication: DIARRHOEA
     Dosage: DOSAGE WAS NO MORE THAN 12.0 MG TOTAL
     Route: 048
     Dates: start: 20121203
  2. IMODIUM [Suspect]
     Indication: DIARRHOEA
     Route: 048
     Dates: start: 20121130
  3. IMODIUM [Suspect]
     Indication: DIARRHOEA
     Dosage: 2.0 MG AS 4.0 MG PO
     Route: 048
     Dates: start: 20121127, end: 20121127

REACTIONS (5)
  - Shock [Fatal]
  - Ileus paralytic [Fatal]
  - Respiratory failure [Fatal]
  - Metabolic acidosis [Not Recovered/Not Resolved]
  - Bone marrow failure [Not Recovered/Not Resolved]
